FAERS Safety Report 23574869 (Version 1)
Quarter: 2024Q1

REPORT INFORMATION
  Report Type: Spontaneous
  Country: US (occurrence: None)
  Receive Date: 20240227
  Receipt Date: 20240227
  Transmission Date: 20240410
  Serious: Yes (Death)
  Sender: FDA-Public Use
  Company Number: None

PATIENT
  Age: 37 Year
  Sex: Male
  Weight: 85.5 kg

DRUGS (13)
  1. DRAMAMINE [Suspect]
     Active Substance: DIMENHYDRINATE
     Indication: Nausea
     Route: 048
     Dates: start: 20240121, end: 20240121
  2. DRAMAMINE [Suspect]
     Active Substance: DIMENHYDRINATE
     Indication: Food allergy
  3. ATROPINE\DIPHENOXYLATE [Concomitant]
     Active Substance: ATROPINE\DIPHENOXYLATE
  4. ONDANSETRON [Concomitant]
     Active Substance: ONDANSETRON
  5. CALCIUM CARBONATE [Concomitant]
     Active Substance: CALCIUM CARBONATE
  6. AMLODIPINE BESYLATE [Concomitant]
  7. Bupropin HCL [Concomitant]
  8. HCTZ/TRIAMTERENE [Concomitant]
  9. Levothyroxine NA(Synthroid) [Concomitant]
  10. NICOTINE POLACRILEX [Concomitant]
     Active Substance: NICOTINE
  11. Chondroitin Glucosamine [Concomitant]
  12. NAPROXEN [Concomitant]
     Active Substance: NAPROXEN
  13. Dramamine Long Lasting [Concomitant]

REACTIONS (5)
  - Drug hypersensitivity [None]
  - Malaise [None]
  - Gastrointestinal disorder [None]
  - Myocardial infarction [None]
  - Kounis syndrome [None]

NARRATIVE: CASE EVENT DATE: 20240121
